FAERS Safety Report 15999669 (Version 3)
Quarter: 2019Q1

REPORT INFORMATION
  Report Type: Spontaneous
  Country: IT (occurrence: IT)
  Receive Date: 20190225
  Receipt Date: 20190311
  Transmission Date: 20190418
  Serious: Yes (Other)
  Sender: FDA-Public Use
  Company Number: IT-PFIZER INC-2019072713

PATIENT
  Age: 31 Year
  Sex: Male

DRUGS (12)
  1. IFOSFAMIDE. [Suspect]
     Active Substance: IFOSFAMIDE
     Indication: METASTASES TO LIVER
  2. ETOPOSIDE. [Suspect]
     Active Substance: ETOPOSIDE
     Indication: METASTASES TO LIVER
     Dosage: 100 MG/M2, CYCLIC (DAY 1-5 EVERY 21 DAYS)
     Route: 042
     Dates: start: 2016
  3. IFOSFAMIDE. [Suspect]
     Active Substance: IFOSFAMIDE
     Indication: EWING^S SARCOMA
     Dosage: 1800 MG/M2, CYCLIC (DAY 1-5 EVERY 21 DAYS)
     Route: 042
     Dates: start: 2016
  4. MESNA. [Suspect]
     Active Substance: MESNA
     Indication: METASTASES TO LIVER
  5. DOXORUBICIN HCL [Suspect]
     Active Substance: DOXORUBICIN HYDROCHLORIDE
     Indication: METASTASES TO LIVER
     Dosage: 75 MG/M2, CYCLIC (DAY 1 EVERY 21 DAYS)
     Route: 042
     Dates: start: 201606
  6. CYCLOPHOSPHAMIDE. [Suspect]
     Active Substance: CYCLOPHOSPHAMIDE
     Indication: METASTASES TO LIVER
     Dosage: REDUCED THE DOSE OF 25%
     Route: 042
     Dates: start: 201606
  7. ETOPOSIDE. [Suspect]
     Active Substance: ETOPOSIDE
     Indication: EWING^S SARCOMA
  8. VINCRISTINE SULFATE. [Suspect]
     Active Substance: VINCRISTINE SULFATE
     Indication: EWING^S SARCOMA
     Dosage: REDUCED THE DOSE OF 25%
     Route: 042
  9. MESNA. [Suspect]
     Active Substance: MESNA
     Indication: EWING^S SARCOMA
     Dosage: UNK (DAY 1-5 EVERY 21 DAYS)
     Route: 042
     Dates: start: 2016
  10. DOXORUBICIN HCL [Suspect]
     Active Substance: DOXORUBICIN HYDROCHLORIDE
     Indication: EWING^S SARCOMA
     Dosage: REDUCED THE DOSE OF 25%
     Route: 042
     Dates: start: 201606
  11. VINCRISTINE SULFATE. [Suspect]
     Active Substance: VINCRISTINE SULFATE
     Indication: METASTASES TO LIVER
     Dosage: 2 MG/M2, CYCLIC (DAY 1 EVERY 21 DAYS)
     Route: 042
     Dates: start: 201606
  12. CYCLOPHOSPHAMIDE. [Suspect]
     Active Substance: CYCLOPHOSPHAMIDE
     Indication: EWING^S SARCOMA
     Dosage: 1200 MG/M2, CYCLIC (DAY 1 EVERY 21 DAYS)
     Route: 042
     Dates: start: 201606

REACTIONS (3)
  - Vomiting [Unknown]
  - Febrile neutropenia [Recovered/Resolved]
  - Nausea [Unknown]

NARRATIVE: CASE EVENT DATE: 2016
